FAERS Safety Report 5295371-0 (Version None)
Quarter: 2007Q2

REPORT INFORMATION
  Report Type: 
  Country: None (occurrence: None)
  Receive Date: 20070412
  Receipt Date: 20070402
  Transmission Date: 20071010
  Serious: Yes (Death, Other)
  Sender: FDA-Public Use
  Company Number: ES-PFIZER INC-2007025872

PATIENT
  Age: 65 Year
  Sex: Male

DRUGS (3)
  1. LYRICA [Suspect]
     Indication: NEURALGIA
     Route: 048
     Dates: start: 20060101, end: 20060101
  2. CHEMOTHERAPY NOS [Concomitant]
  3. MORPHINE [Concomitant]

REACTIONS (2)
  - MUSCULAR WEAKNESS [None]
  - RESPIRATORY FAILURE [None]
